FAERS Safety Report 21146891 (Version 1)
Quarter: 2022Q3

REPORT INFORMATION
  Report Type: Spontaneous
  Country: US (occurrence: None)
  Receive Date: 20220728
  Receipt Date: 20220728
  Transmission Date: 20221026
  Serious: Yes (Other)
  Sender: FDA-Public Use
  Company Number: None

PATIENT
  Age: 62 Year
  Sex: Female
  Weight: 139.5 kg

DRUGS (11)
  1. MAGNESIUM CITRATE [Suspect]
     Active Substance: MAGNESIUM CITRATE
     Indication: Muscle relaxant therapy
     Dosage: OTHER QUANTITY : 1 OUNCE(S);?FREQUENCY : AT BEDTIME;?
     Route: 048
     Dates: start: 20220724, end: 20220728
  2. THYROID [Concomitant]
     Active Substance: LEVOTHYROXINE\LIOTHYRONINE
  3. METOPROLOL SUCCINATE [Concomitant]
     Active Substance: METOPROLOL SUCCINATE
  4. LASIX [Concomitant]
     Active Substance: FUROSEMIDE
  5. DULOXETINE [Concomitant]
     Active Substance: DULOXETINE
  6. SINGULAIR [Concomitant]
     Active Substance: MONTELUKAST SODIUM
  7. RALOXIFENE [Concomitant]
     Active Substance: RALOXIFENE
  8. OXYGEN [Concomitant]
     Active Substance: OXYGEN
  9. DEVICE [Concomitant]
     Active Substance: DEVICE
  10. VITAMINS [Concomitant]
     Active Substance: VITAMINS
  11. BENADRYL [Concomitant]
     Active Substance: DIPHENHYDRAMINE HYDROCHLORIDE

REACTIONS (1)
  - Diarrhoea [None]

NARRATIVE: CASE EVENT DATE: 20220725
